FAERS Safety Report 7133603-4 (Version None)
Quarter: 2010Q4

REPORT INFORMATION
  Report Type: 
  Country: None (occurrence: None)
  Receive Date: 20101202
  Receipt Date: 20101124
  Transmission Date: 20110411
  Serious: Yes (Hospitalization)
  Sender: FDA-Public Use
  Company Number: GB-MERCK-0907GBR00003

PATIENT
  Sex: Male

DRUGS (1)
  1. DECADRON [Suspect]
     Indication: CROUP INFECTIOUS
     Route: 048

REACTIONS (2)
  - CROUP INFECTIOUS [None]
  - DRUG INEFFECTIVE [None]
